FAERS Safety Report 14857821 (Version 2)
Quarter: 2018Q3

REPORT INFORMATION
  Report Type: Spontaneous
  Country: US (occurrence: US)
  Receive Date: 20180508
  Receipt Date: 20180807
  Transmission Date: 20181010
  Serious: No
  Sender: FDA-Public Use
  Company Number: US-RADIUS HEALTH INC.-2018US000491

PATIENT
  Sex: Female
  Weight: 68.27 kg

DRUGS (12)
  1. LEVOTHYROXINE SODIUM. [Concomitant]
     Active Substance: LEVOTHYROXINE SODIUM
     Indication: PRODUCT USED FOR UNKNOWN INDICATION
     Dosage: 75 MCG QD
     Route: 048
  2. CLOPIDOGREL BISULFATE. [Concomitant]
     Active Substance: CLOPIDOGREL BISULFATE
     Indication: PRODUCT USED FOR UNKNOWN INDICATION
     Dosage: 75 MG, QD
     Route: 048
  3. OMEPRAZOLE. [Concomitant]
     Active Substance: OMEPRAZOLE
     Indication: PRODUCT USED FOR UNKNOWN INDICATION
     Dosage: 20 MG, QD
     Route: 048
  4. PROAIR HFA [Concomitant]
     Active Substance: ALBUTEROL SULFATE
     Indication: COUGH
     Dosage: 2 PUFFS AS NEEDED Q 6 HOURS
  5. BENZONATATE. [Concomitant]
     Active Substance: BENZONATATE
     Indication: COUGH
     Dosage: 100 MG 3 TIMES /DAY AS NEEDED
     Route: 048
  6. VITAMIN D [Concomitant]
     Active Substance: CHOLECALCIFEROL
     Indication: PRODUCT USED FOR UNKNOWN INDICATION
     Dosage: 5000 U ONCE EVERY WEEK
  7. CYANOCOBALAMIN. [Concomitant]
     Active Substance: CYANOCOBALAMIN
     Indication: PRODUCT USED FOR UNKNOWN INDICATION
     Dosage: 1000 MCG/ML EVERY MONTH
     Route: 030
  8. PNEUMOCOCCAL VACCINE POLYVALENT NOS [Concomitant]
     Active Substance: PNEUMOCOCCAL VACCINE POLYVALENT
     Indication: PRODUCT USED FOR UNKNOWN INDICATION
  9. TYMLOS [Suspect]
     Active Substance: ABALOPARATIDE
     Indication: OSTEOPOROSIS POSTMENOPAUSAL
     Dosage: 80 MCG, DAILY
     Route: 058
     Dates: start: 201801
  10. PRAVASTATIN. [Concomitant]
     Active Substance: PRAVASTATIN
     Indication: PRODUCT USED FOR UNKNOWN INDICATION
     Dosage: 40 MG, QD
     Route: 048
  11. AMOXICILLIN. [Concomitant]
     Active Substance: AMOXICILLIN
     Indication: COUGH
     Dosage: 500 MG, Q 8 HOURS FOR 10 DAYS
  12. INFLUENZA VACCINE [Concomitant]
     Active Substance: INFLUENZA VIRUS VACCINE
     Indication: PRODUCT USED FOR UNKNOWN INDICATION

REACTIONS (9)
  - Heart rate increased [Unknown]
  - Procedural dizziness [Unknown]
  - Procedural headache [Unknown]
  - Procedural nausea [Unknown]
  - Malaise [Unknown]
  - Chest pain [Unknown]
  - Drug dose omission [Unknown]
  - Heart rate irregular [Unknown]
  - Headache [Unknown]
